FAERS Safety Report 8206985-X (Version None)
Quarter: 2012Q1

REPORT INFORMATION
  Report Type: 
  Country: None (occurrence: None)
  Receive Date: 20120314
  Receipt Date: 20120302
  Transmission Date: 20120608
  Serious: Yes (Hospitalization)
  Sender: FDA-Public Use
  Company Number: US-ELI_LILLY_AND_COMPANY-US201110002114

PATIENT
  Sex: Female

DRUGS (8)
  1. FORTEO [Suspect]
     Dosage: 20 UG, QD
  2. CALCIUM [Concomitant]
  3. PERCOCET [Concomitant]
  4. FORTEO [Suspect]
     Indication: OSTEOPOROSIS
     Dosage: 20 UG, QD
     Dates: start: 20111001
  5. FORTEO [Suspect]
     Dosage: 20 UG, QD
  6. VITAMIN D [Concomitant]
  7. GABAPENTIN [Concomitant]
  8. PRILOSEC [Concomitant]

REACTIONS (9)
  - IMPAIRED HEALING [None]
  - WEIGHT DECREASED [None]
  - GENERAL PHYSICAL HEALTH DETERIORATION [None]
  - ABDOMINAL PAIN UPPER [None]
  - VOMITING [None]
  - ANAEMIA [None]
  - GASTRIC HAEMORRHAGE [None]
  - INJECTION SITE ERYTHEMA [None]
  - ADVERSE EVENT [None]
